FAERS Safety Report 11753079 (Version 1)
Quarter: 2015Q4

REPORT INFORMATION
  Report Type: Spontaneous
  Country: FR (occurrence: FR)
  Receive Date: 20151119
  Receipt Date: 20151119
  Transmission Date: 20160304
  Serious: Yes (Other)
  Sender: FDA-Public Use
  Company Number: FR-ROCHE-1662888

PATIENT
  Age: 57 Year
  Sex: Female

DRUGS (1)
  1. RIVOTRIL [Suspect]
     Active Substance: CLONAZEPAM
     Indication: INTERVERTEBRAL DISC PROTRUSION
     Dosage: SINGLE INTAKE
     Route: 048
     Dates: start: 20150930, end: 20150930

REACTIONS (4)
  - Amnesia [Recovered/Resolved]
  - Seizure [Recovered/Resolved]
  - Eye movement disorder [Recovered/Resolved]
  - Muscle spasms [Recovered/Resolved]

NARRATIVE: CASE EVENT DATE: 20151001
